FAERS Safety Report 18394572 (Version 1)
Quarter: 2020Q4

REPORT INFORMATION
  Report Type: Spontaneous
  Country: FR (occurrence: FR)
  Receive Date: 20201017
  Receipt Date: 20201017
  Transmission Date: 20210114
  Serious: Yes (Other)
  Sender: FDA-Public Use
  Company Number: NVSC2020FR275593

PATIENT
  Age: 65 Year
  Sex: Female
  Weight: 55 kg

DRUGS (3)
  1. AMOXICILLINE [Suspect]
     Active Substance: AMOXICILLIN
     Indication: PNEUMONIA BACTERIAL
     Dosage: 3 G, QD
     Route: 042
     Dates: start: 20200830, end: 20200903
  2. CASPOFUNGINE [Suspect]
     Active Substance: CASPOFUNGIN
     Indication: PNEUMONIA FUNGAL
     Dosage: 1 DF
     Route: 042
     Dates: start: 20200826, end: 20200902
  3. SIMPONI [Concomitant]
     Active Substance: GOLIMUMAB
     Indication: SPONDYLITIS
     Dosage: 1 DF, TOTAL
     Route: 042
     Dates: start: 20200713, end: 20200713

REACTIONS (2)
  - Metabolic alkalosis [Recovered/Resolved]
  - Renal tubular disorder [Recovered/Resolved]

NARRATIVE: CASE EVENT DATE: 20200831
